FAERS Safety Report 16283915 (Version 1)
Quarter: 2019Q2

REPORT INFORMATION
  Report Type: Other
  Country: LV (occurrence: LV)
  Receive Date: 20190507
  Receipt Date: 20190507
  Transmission Date: 20190711
  Serious: Yes (Other)
  Sender: FDA-Public Use
  Company Number: LV-GE HEALTHCARE LIFE SCIENCES-2019CSU002348

PATIENT

DRUGS (2)
  1. OMNIPAQUE [Suspect]
     Active Substance: IOHEXOL
     Indication: PRODUCT USED FOR UNKNOWN INDICATION
  2. OMNIPAQUE [Suspect]
     Active Substance: IOHEXOL
     Indication: DIAGNOSTIC PROCEDURE
     Dosage: 100 ML, SINGLE
     Route: 042
     Dates: start: 20190417, end: 20190417

REACTIONS (2)
  - Hypertensive crisis [Recovering/Resolving]
  - Dyspnoea [Recovering/Resolving]

NARRATIVE: CASE EVENT DATE: 20190417
